FAERS Safety Report 17275257 (Version 3)
Quarter: 2020Q2

REPORT INFORMATION
  Report Type: Spontaneous
  Country: US (occurrence: US)
  Receive Date: 20200116
  Receipt Date: 20200417
  Transmission Date: 20200713
  Serious: Yes (Other)
  Sender: FDA-Public Use
  Company Number: US-CELGENEUS-USA-20200103798

PATIENT
  Age: 65 Year
  Sex: Female

DRUGS (1)
  1. OTEZLA [Suspect]
     Active Substance: APREMILAST
     Indication: PSORIATIC ARTHROPATHY
     Dosage: 60 MILLIGRAM
     Route: 048
     Dates: start: 20190918

REACTIONS (8)
  - Staphylococcal infection [Unknown]
  - Product dose omission [Unknown]
  - Frequent bowel movements [Unknown]
  - Contusion [Unknown]
  - Diarrhoea [Unknown]
  - Psoriasis [Unknown]
  - Balance disorder [Unknown]
  - Fall [Unknown]

NARRATIVE: CASE EVENT DATE: 20200110
